FAERS Safety Report 7907424-6 (Version None)
Quarter: 2011Q4

REPORT INFORMATION
  Report Type: 
  Country: None (occurrence: None)
  Receive Date: 20111110
  Receipt Date: 20111028
  Transmission Date: 20120403
  Serious: Yes (Death)
  Sender: FDA-Public Use
  Company Number: IL-MYLANLABS-2011S1022781

PATIENT
  Age: 43 Year
  Sex: Female

DRUGS (15)
  1. TAMOXIFEN CITRATE [Suspect]
     Indication: BREAST CANCER METASTATIC
     Route: 065
  2. GEMCITABINE [Suspect]
     Indication: BREAST CANCER METASTATIC
     Route: 065
  3. VINORELBINE [Suspect]
     Indication: BREAST CANCER METASTATIC
     Route: 065
  4. BEVACIZUMAB [Suspect]
     Indication: BREAST CANCER METASTATIC
     Route: 065
  5. IRINOTECAN HCL [Suspect]
     Indication: BREAST CANCER METASTATIC
     Route: 065
  6. FUROSEMIDE [Concomitant]
     Route: 065
  7. ARIMIDEX [Suspect]
     Indication: BREAST CANCER METASTATIC
     Route: 065
  8. FULVESTRANT [Suspect]
     Indication: BREAST CANCER METASTATIC
     Route: 065
  9. MEGESTROL ACETATE [Suspect]
     Indication: BREAST CANCER METASTATIC
     Route: 065
  10. PACLITAXEL [Suspect]
     Indication: BREAST CANCER METASTATIC
     Route: 065
  11. DOCETAXEL [Suspect]
     Indication: BREAST CANCER METASTATIC
     Route: 065
  12. CARBOPLATIN [Suspect]
     Indication: BREAST CANCER METASTATIC
     Route: 065
  13. MITOMYCIN [Suspect]
     Indication: BREAST CANCER METASTATIC
     Route: 065
  14. EXEMESTANE [Suspect]
     Indication: BREAST CANCER METASTATIC
     Route: 065
  15. CAPECITABINE [Suspect]
     Indication: BREAST CANCER METASTATIC
     Route: 065

REACTIONS (2)
  - HEPATIC CIRRHOSIS [None]
  - HEPATIC FAILURE [None]
